FAERS Safety Report 5486788-X (Version None)
Quarter: 2007Q4

REPORT INFORMATION
  Report Type: 
  Country: None (occurrence: None)
  Receive Date: 20071016
  Receipt Date: 20071010
  Transmission Date: 20080405
  Serious: Yes (Other)
  Sender: FDA-Public Use
  Company Number: B0491177A

PATIENT
  Age: 78 Year
  Sex: Male

DRUGS (4)
  1. DILATREND [Suspect]
     Dosage: 6.3MG PER DAY
     Route: 048
     Dates: start: 20070524, end: 20070609
  2. LASIX [Concomitant]
  3. MAREVAN [Concomitant]
  4. TRITACE [Concomitant]

REACTIONS (2)
  - HAEMOLYTIC ANAEMIA [None]
  - JAUNDICE [None]
